FAERS Safety Report 19939381 (Version 1)
Quarter: 2021Q4

REPORT INFORMATION
  Report Type: Other
  Country: CA (occurrence: CA)
  Receive Date: 20211011
  Receipt Date: 20211011
  Transmission Date: 20220303
  Serious: Yes (Death, Hospitalization)
  Sender: FDA-Public Use
  Company Number: CA-BOEHRINGERINGELHEIM-2021-BI-130825

PATIENT
  Age: 75 Year
  Sex: Male

DRUGS (2)
  1. ALTEPLASE [Suspect]
     Active Substance: ALTEPLASE
     Indication: Product used for unknown indication
     Dosage: TAKEN ONCE
     Route: 065
  2. ASPIRIN [Concomitant]
     Active Substance: ASPIRIN
     Indication: Product used for unknown indication

REACTIONS (6)
  - Death [Fatal]
  - Cerebral haemorrhage [Unknown]
  - Subarachnoid haemorrhage [Unknown]
  - Pneumonia aspiration [Unknown]
  - Cardiac failure congestive [Unknown]
  - Atrial fibrillation [Unknown]
